FAERS Safety Report 8226264 (Version 2)
Quarter: 2014Q2

REPORT INFORMATION
  Report Type: Spontaneous
  Country: US (occurrence: US)
  Receive Date: 20111103
  Receipt Date: 20140415
  Transmission Date: 20141212
  Serious: Yes (Hospitalization, Other)
  Sender: FDA-Public Use
  Company Number: US-ASTRAZENECA-2011SE49974

PATIENT
  Age: 61 Year
  Sex: Female
  Weight: 65.8 kg

DRUGS (1)
  1. NEXIUM [Suspect]
     Indication: GASTROOESOPHAGEAL REFLUX DISEASE
     Route: 048
     Dates: start: 19900101, end: 20140403

REACTIONS (5)
  - Foot deformity [Unknown]
  - Throat tightness [Unknown]
  - Gastric haemorrhage [Unknown]
  - Malaise [Unknown]
  - Drug dose omission [Unknown]
